FAERS Safety Report 17655317 (Version 9)
Quarter: 2021Q4

REPORT INFORMATION
  Report Type: Report from Study
  Country: RU (occurrence: RU)
  Receive Date: 20200410
  Receipt Date: 20211124
  Transmission Date: 20220303
  Serious: Yes (Hospitalization)
  Sender: FDA-Public Use
  Company Number: RU-JNJFOC-20200342116

PATIENT
  Age: 40 Year
  Sex: Female
  Weight: 89 kg

DRUGS (12)
  1. GUSELKUMAB [Suspect]
     Active Substance: GUSELKUMAB
     Indication: Colitis ulcerative
     Route: 058
     Dates: start: 20191119, end: 20200128
  2. GUSELKUMAB [Suspect]
     Active Substance: GUSELKUMAB
  3. GOLIMUMAB [Suspect]
     Active Substance: GOLIMUMAB
     Indication: Colitis ulcerative
     Route: 058
     Dates: start: 20191119, end: 20200128
  4. METRONIDAZOLE [Concomitant]
     Active Substance: METRONIDAZOLE
     Indication: Pulmonary artery thrombosis
     Route: 042
     Dates: start: 20200226
  5. CIPROFLOXACIN [Concomitant]
     Active Substance: CIPROFLOXACIN
     Indication: Pulmonary artery thrombosis
     Dates: start: 20200226
  6. RIVAROXABAN [Concomitant]
     Active Substance: RIVAROXABAN
     Indication: Pulmonary artery thrombosis
     Route: 048
     Dates: start: 20200226
  7. ACETAMINOPHEN [Concomitant]
     Active Substance: ACETAMINOPHEN
     Indication: Pulmonary artery thrombosis
     Route: 042
     Dates: start: 20200226
  8. CEFTRIAXONE [Concomitant]
     Active Substance: CEFTRIAXONE
     Indication: Embolism
     Route: 042
     Dates: start: 20200226
  9. MESALAMINE [Concomitant]
     Active Substance: MESALAMINE
     Indication: Product used for unknown indication
     Route: 065
  10. KETOROLAC [Concomitant]
     Active Substance: KETOROLAC TROMETHAMINE
     Indication: Product used for unknown indication
     Route: 065
     Dates: start: 20200226, end: 20200315
  11. CEFOPERAZONE SODIUM\SULBACTAM [Concomitant]
     Active Substance: CEFOPERAZONE SODIUM\SULBACTAM
     Indication: Product used for unknown indication
     Route: 065
     Dates: start: 20200302, end: 20200325
  12. FLUCONAZOLE [Concomitant]
     Active Substance: FLUCONAZOLE
     Indication: Product used for unknown indication
     Route: 065
     Dates: start: 20200311, end: 20200315

REACTIONS (1)
  - Tuberculosis of intrathoracic lymph nodes [Not Recovered/Not Resolved]

NARRATIVE: CASE EVENT DATE: 20200325
